FAERS Safety Report 17495282 (Version 1)
Quarter: 2020Q1

REPORT INFORMATION
  Report Type: Spontaneous
  Country: US (occurrence: US)
  Receive Date: 20200303
  Receipt Date: 20200303
  Transmission Date: 20200409
  Serious: Yes (Hospitalization)
  Sender: FDA-Public Use
  Company Number: None

PATIENT
  Sex: Female

DRUGS (9)
  1. ABILIFY MAINTENA [Suspect]
     Active Substance: ARIPIPRAZOLE
     Dosage: ?          OTHER FREQUENCY:MONTHLY;?
     Route: 030
     Dates: start: 20190422
  2. EQUETRO [Concomitant]
     Active Substance: CARBAMAZEPINE
  3. HYDROXYZ HCL [Concomitant]
     Active Substance: HYDROXYZINE HYDROCHLORIDE
  4. TOPIRAMATE. [Concomitant]
     Active Substance: TOPIRAMATE
  5. TRIAMCINOLON [Concomitant]
  6. CLOBETASOL [Concomitant]
     Active Substance: CLOBETASOL
  7. CARBAMAZEPIN [Concomitant]
     Active Substance: CARBAMAZEPINE
  8. FLUTICASONE. [Concomitant]
     Active Substance: FLUTICASONE
  9. LITHIUM. [Concomitant]
     Active Substance: LITHIUM

REACTIONS (1)
  - Condition aggravated [None]
